FAERS Safety Report 8904596 (Version 5)
Quarter: 2017Q4

REPORT INFORMATION
  Report Type: Spontaneous
  Country: US (occurrence: US)
  Receive Date: 20121113
  Receipt Date: 20171211
  Transmission Date: 20180321
  Serious: Yes (Hospitalization, Disabling, Other)
  Sender: FDA-Public Use
  Company Number: US-009507513-1211USA002773

PATIENT
  Sex: Female

DRUGS (7)
  1. WELLBUTRIN [Concomitant]
     Active Substance: BUPROPION HYDROCHLORIDE
     Route: 065
  2. FOSAMAX [Suspect]
     Active Substance: ALENDRONATE SODIUM
     Dosage: 70 UNK, UNK
     Route: 048
     Dates: start: 20080522, end: 20090610
  3. TENORETIC [Concomitant]
     Active Substance: ATENOLOL\CHLORTHALIDONE
     Route: 065
  4. FOSAMAX PLUS D [Suspect]
     Active Substance: ALENDRONATE SODIUM\CHOLECALCIFEROL
     Indication: OSTEOPOROSIS
     Route: 048
  5. ALENDRONATE SODIUM. [Suspect]
     Active Substance: ALENDRONATE SODIUM
     Dosage: 70 MG, UNK
     Route: 048
  6. FOSAMAX [Suspect]
     Active Substance: ALENDRONATE SODIUM
     Indication: OSTEOPOROSIS
     Dosage: 70 MG, UNK
     Route: 048
     Dates: start: 20030923
  7. HORMONES (UNSPECIFIED) [Concomitant]
     Active Substance: UNSPECIFIED INGREDIENT
     Route: 065

REACTIONS (14)
  - Low turnover osteopathy [Unknown]
  - Cataract [Unknown]
  - Femur fracture [Unknown]
  - Hypotension [Unknown]
  - Osteopenia [Unknown]
  - Spinal osteoarthritis [Unknown]
  - Femur fracture [Unknown]
  - Osteoporosis [Unknown]
  - Stress fracture [Unknown]
  - Femur fracture [Unknown]
  - Hyponatraemia [Unknown]
  - Anaemia [Unknown]
  - Hernia repair [Unknown]
  - Intervertebral disc operation [Unknown]

NARRATIVE: CASE EVENT DATE: 20090702
